FAERS Safety Report 18756666 (Version 1)
Quarter: 2021Q1

REPORT INFORMATION
  Report Type: Report from Study
  Country: US (occurrence: US)
  Receive Date: 20210119
  Receipt Date: 20210119
  Transmission Date: 20210419
  Serious: Yes (Hospitalization)
  Sender: FDA-Public Use
  Company Number: US-EXELIXIS-CABO-21036759

PATIENT
  Sex: Female
  Weight: 78.01 kg

DRUGS (1)
  1. CABOMETYX [Suspect]
     Active Substance: CABOZANTINIB S-MALATE
     Indication: RENAL CELL CARCINOMA
     Dosage: 60 MG, QD
     Route: 048
     Dates: end: 20210107

REACTIONS (4)
  - Inflammation [Unknown]
  - Dysphagia [Unknown]
  - Nasal ulcer [Unknown]
  - Pharyngeal ulceration [Unknown]
